FAERS Safety Report 17165918 (Version 1)
Quarter: 2019Q4

REPORT INFORMATION
  Report Type: Spontaneous
  Country: FR (occurrence: FR)
  Receive Date: 20191217
  Receipt Date: 20191217
  Transmission Date: 20200122
  Serious: Yes (Hospitalization, Other)
  Sender: FDA-Public Use
  Company Number: FR-SA-2018SA168612

PATIENT
  Age: 65 Year
  Sex: Male
  Weight: 70 kg

DRUGS (11)
  1. DEXAMETHASONE. [Suspect]
     Active Substance: DEXAMETHASONE
     Dosage: 40 MG, QD
     Route: 040
     Dates: start: 20170817, end: 20170820
  2. DEXAMETHASONE. [Suspect]
     Active Substance: DEXAMETHASONE
     Indication: NON-HODGKIN^S LYMPHOMA
     Dosage: 4 MG, QCY
     Route: 041
     Dates: start: 20170816, end: 20170816
  3. RITUXIMAB. [Suspect]
     Active Substance: RITUXIMAB
     Indication: NON-HODGKIN^S LYMPHOMA
     Dosage: 680 MG, QCY
     Route: 041
     Dates: start: 20170816, end: 20170816
  4. AUGMENTIN BD [Concomitant]
     Active Substance: AMOXICILLIN\CLAVULANIC ACID
     Indication: HYPERTHERMIA
     Dosage: UNK
     Dates: start: 20170817
  5. PERFALGAN [Concomitant]
     Active Substance: ACETAMINOPHEN
     Indication: NON-HODGKIN^S LYMPHOMA
     Dosage: 1000 MG, QCY
     Route: 041
     Dates: start: 20170816, end: 20170816
  6. OXALIPLATIN. [Suspect]
     Active Substance: OXALIPLATIN
     Indication: NON-HODGKIN^S LYMPHOMA
     Dosage: 180 MG, QCY
     Route: 041
     Dates: start: 20170816, end: 20170816
  7. DIAMICRON [Concomitant]
     Active Substance: GLICLAZIDE
     Indication: DIABETES MELLITUS
     Dosage: 180 MG, QD
     Route: 048
  8. ZOPHREN [ONDANSETRON HYDROCHLORIDE] [Concomitant]
     Active Substance: ONDANSETRON
     Indication: VOMITING
     Dosage: 8 MG, QD
     Route: 041
     Dates: start: 20170816, end: 20170818
  9. LANTUS [Concomitant]
     Active Substance: INSULIN GLARGINE
     Indication: DIABETES MELLITUS
     Dosage: 12 IU, QD
     Route: 058
  10. POLARAMINE [Concomitant]
     Active Substance: DEXCHLORPHENIRAMINE MALEATE
     Indication: NON-HODGKIN^S LYMPHOMA
     Dosage: 5 MG, QCY
     Route: 040
     Dates: start: 20170816, end: 20170816
  11. CYTARABINE. [Suspect]
     Active Substance: CYTARABINE
     Indication: NON-HODGKIN^S LYMPHOMA
     Dosage: 7200 MG, QCY
     Route: 041
     Dates: start: 20170816, end: 20170817

REACTIONS (3)
  - Acute pulmonary oedema [Recovered/Resolved]
  - Cardiac ventricular disorder [Recovered/Resolved]
  - Atrial fibrillation [Recovered/Resolved]

NARRATIVE: CASE EVENT DATE: 20170819
